FAERS Safety Report 8622088 (Version 2)
Quarter: 2012Q4

REPORT INFORMATION
  Report Type: Spontaneous
  Country: US (occurrence: None)
  Receive Date: 20120601
  Receipt Date: 20120820
  Transmission Date: 20130627
  Serious: Yes (Other)
  Sender: FDA-Public Use
  Company Number: US-1192358

PATIENT
  Age: 85 Year
  Sex: Female

DRUGS (1)
  1. BSS PLUS [Suspect]
     Indication: INTRAOCULAR LENS IMPLANT
     Dosage: (INTRAOCULAR)
     Route: 031
     Dates: start: 2012, end: 2012

REACTIONS (1)
  - TOXIC ANTERIOR SEGMENT SYNDROME [None]
